FAERS Safety Report 6367548-4 (Version None)
Quarter: 2009Q3

REPORT INFORMATION
  Report Type: 
  Country: None (occurrence: None)
  Receive Date: 20090921
  Receipt Date: 20090917
  Transmission Date: 20100115
  Serious: Yes (Life-Threatening, Hospitalization)
  Sender: FDA-Public Use
  Company Number: AU-B.I. PHARMACEUTICALS,INC./RIDGEFIELD-2009-AU-00529AU

PATIENT
  Age: 78 Year
  Sex: Male
  Weight: 70 kg

DRUGS (4)
  1. MOBIC [Suspect]
     Dosage: 15 MG
     Route: 048
     Dates: start: 20090127, end: 20090316
  2. ACETYLSALICYLIC ACID [Suspect]
     Dosage: 100 MG
     Dates: start: 20080212
  3. ATACAND [Concomitant]
  4. ATENOLOL [Concomitant]

REACTIONS (2)
  - DUODENAL ULCER [None]
  - THROMBOSIS [None]
